FAERS Safety Report 7621018-1 (Version None)
Quarter: 2011Q3

REPORT INFORMATION
  Report Type: 
  Country: None (occurrence: None)
  Receive Date: 20110719
  Receipt Date: 20100604
  Transmission Date: 20111222
  Serious: No
  Sender: FDA-Public Use
  Company Number: US-KINGPHARMUSA00001-K201000714

PATIENT
  Sex: Female
  Weight: 85.714 kg

DRUGS (6)
  1. LEVOXYL [Suspect]
     Dosage: 100 MCG, QD
     Dates: end: 20100401
  2. LEVOXYL [Suspect]
     Indication: THYROID HORMONE REPLACEMENT THERAPY
     Dosage: 125 MCG, QD
     Route: 048
  3. NEXIUM [Concomitant]
     Indication: GASTROOESOPHAGEAL REFLUX DISEASE
     Dosage: UNK, QAM
     Route: 048
  4. CALCIUM + VITAMIN D [Concomitant]
     Indication: SUPPLEMENTATION THERAPY
     Dosage: 500/1000 MG, QD
     Route: 048
  5. LEVOXYL [Suspect]
     Dosage: 88 MCG, QD
     Dates: start: 20100401
  6. LEVOXYL [Suspect]
     Indication: PROPHYLAXIS
     Dosage: UNK
     Route: 048

REACTIONS (23)
  - POLLAKIURIA [None]
  - GENERALISED ERYTHEMA [None]
  - GASTROINTESTINAL HYPERMOTILITY [None]
  - ORAL DISCOMFORT [None]
  - CONSTIPATION [None]
  - INSOMNIA [None]
  - FEELING HOT [None]
  - PSYCHOMOTOR HYPERACTIVITY [None]
  - FEELING JITTERY [None]
  - C-REACTIVE PROTEIN INCREASED [None]
  - HEART RATE INCREASED [None]
  - HEADACHE [None]
  - HEART RATE DECREASED [None]
  - HYPERTHYROIDISM [None]
  - SLEEP DISORDER [None]
  - WEIGHT DECREASED [None]
  - THINKING ABNORMAL [None]
  - BLOOD PRESSURE INCREASED [None]
  - ANTINUCLEAR ANTIBODY INCREASED [None]
  - ASTHENIA [None]
  - SOMNOLENCE [None]
  - ONYCHOCLASIS [None]
  - BLOOD PRESSURE FLUCTUATION [None]
